FAERS Safety Report 7471733-8 (Version None)
Quarter: 2011Q2

REPORT INFORMATION
  Report Type: 
  Country: None (occurrence: None)
  Receive Date: 20110511
  Receipt Date: 20100622
  Transmission Date: 20111010
  Serious: No
  Sender: FDA-Public Use
  Company Number: A0846031A

PATIENT
  Age: 64 Year
  Sex: Female
  Weight: 72.3 kg

DRUGS (3)
  1. HERCEPTIN [Concomitant]
     Route: 042
     Dates: start: 20091113
  2. TYKERB [Suspect]
     Dosage: 750MG PER DAY
     Route: 065
     Dates: start: 20100218
  3. TAXOL [Concomitant]
     Route: 042
     Dates: start: 20100204

REACTIONS (3)
  - RASH [None]
  - EYE SWELLING [None]
  - ERYTHEMA [None]
